FAERS Safety Report 9366605 (Version 1)
Quarter: 2013Q2

REPORT INFORMATION
  Report Type: Spontaneous
  Country: NZ (occurrence: None)
  Receive Date: 20130620
  Receipt Date: 20130620
  Transmission Date: 20140414
  Serious: Yes (Other)
  Sender: FDA-Public Use
  Company Number: 2013AP006048

PATIENT
  Age: 26 Year
  Sex: Female

DRUGS (2)
  1. CITALOPRAM [Suspect]
     Dosage: TOTAL
  2. TRAMADOL (TRAMADOL) [Suspect]
     Indication: INTENTIONAL OVERDOSE
     Dosage: TOTAL

REACTIONS (4)
  - Serotonin syndrome [None]
  - Intentional overdose [None]
  - Hyperhidrosis [None]
  - Tremor [None]
